FAERS Safety Report 6736033-X (Version None)
Quarter: 2010Q2

REPORT INFORMATION
  Report Type: 
  Country: None (occurrence: None)
  Receive Date: 20100521
  Receipt Date: 20100427
  Transmission Date: 20101027
  Serious: Yes (Hospitalization, Other)
  Sender: FDA-Public Use
  Company Number: US-ROCHE-343896

PATIENT
  Sex: Female
  Weight: 1 kg

DRUGS (5)
  1. TRASTUZUMAB [Suspect]
     Dates: start: 20020709
  2. TRASTUZUMAB [Suspect]
     Dates: start: 20030214
  3. TRASTUZUMAB [Suspect]
     Dosage: LOADING DOSE
  4. TRASTUZUMAB [Suspect]
     Dosage: START DATE REPORTED AS 6 WEEKS PRIOR TO PREGNANCY.
  5. NAVELBINE [Suspect]
     Dates: start: 20020709, end: 20030123

REACTIONS (14)
  - CAESAREAN SECTION [None]
  - CAPILLARY LEAK SYNDROME [None]
  - CEREBRAL HAEMORRHAGE NEONATAL [None]
  - HEART DISEASE CONGENITAL [None]
  - INFECTION [None]
  - MULTI-ORGAN FAILURE [None]
  - NECROTISING COLITIS [None]
  - NEONATAL RESPIRATORY DISTRESS SYNDROME [None]
  - OLIGOHYDRAMNIOS [None]
  - PNEUMOTHORAX [None]
  - PREMATURE BABY [None]
  - PREMATURE LABOUR [None]
  - RENAL FAILURE [None]
  - RESPIRATORY FAILURE [None]
